FAERS Safety Report 23172573 (Version 2)
Quarter: 2023Q4

REPORT INFORMATION
  Report Type: Report from Study
  Country: MX (occurrence: MX)
  Receive Date: 20231110
  Receipt Date: 20231205
  Transmission Date: 20240109
  Serious: Yes (Hospitalization)
  Sender: FDA-Public Use
  Company Number: MX-ALXN-A202313580

PATIENT
  Age: 14 Year
  Sex: Female
  Weight: 25 kg

DRUGS (8)
  1. KANUMA [Suspect]
     Active Substance: SEBELIPASE ALFA
     Indication: Lysosomal acid lipase deficiency
     Dosage: 3 MILLIGRAM PER MILLILITRE, Q2W
     Route: 042
     Dates: start: 20230315
  2. KANUMA [Suspect]
     Active Substance: SEBELIPASE ALFA
     Dosage: 6 MG/ML, Q2W
     Route: 042
     Dates: start: 20230415
  3. SOMATROPIN [Suspect]
     Active Substance: SOMATROPIN
     Indication: Blood growth hormone
     Dosage: UNK, UNK, ADMINISTERED AT NIGHT
     Route: 065
     Dates: start: 202308
  4. URSODIOL [Concomitant]
     Active Substance: URSODIOL
     Indication: Product used for unknown indication
     Dosage: UNK
     Route: 065
  5. VITAMIN K [Concomitant]
     Active Substance: PHYTONADIONE
     Indication: Haemorrhage
     Dosage: UNK
     Route: 065
     Dates: start: 2021
  6. IRON [Concomitant]
     Active Substance: IRON
     Indication: Haemorrhage
  7. VITAMIN E [Concomitant]
     Active Substance: .ALPHA.-TOCOPHEROL
     Indication: Body fat disorder
     Dosage: UNK
     Route: 065
     Dates: start: 2021
  8. OMEGA 3 [Concomitant]
     Active Substance: CAPSAICIN
     Indication: Body fat disorder
     Dosage: UNK
     Route: 065
     Dates: start: 2021

REACTIONS (1)
  - Device related infection [Recovering/Resolving]

NARRATIVE: CASE EVENT DATE: 20231016
